FAERS Safety Report 6858983-6 (Version None)
Quarter: 2010Q3

REPORT INFORMATION
  Report Type: 
  Country: None (occurrence: None)
  Receive Date: 20100719
  Receipt Date: 20080221
  Transmission Date: 20110219
  Serious: No
  Sender: FDA-Public Use
  Company Number: US-PFIZER INC-2008017510

PATIENT
  Sex: Male

DRUGS (11)
  1. CHANTIX [Suspect]
     Indication: SMOKING CESSATION THERAPY
     Dates: start: 20080101
  2. ALBUTEROL [Concomitant]
  3. NITROUS OXIDE [Concomitant]
  4. DRUG, UNSPECIFIED [Concomitant]
  5. VITAMIN C [Concomitant]
  6. VITAMIN D [Concomitant]
  7. PANTOTHENIC ACID [Concomitant]
  8. NIACIN [Concomitant]
  9. GENERAL NUTRIENTS [Concomitant]
  10. HERBAL PREPARATION [Concomitant]
  11. ALL OTHER THERAPEUTIC PRODUCTS [Concomitant]

REACTIONS (3)
  - INSOMNIA [None]
  - NAUSEA [None]
  - SLEEP DISORDER [None]
